FAERS Safety Report 15452000 (Version 1)
Quarter: 2018Q4

REPORT INFORMATION
  Report Type: Spontaneous
  Country: GR (occurrence: GR)
  Receive Date: 20181001
  Receipt Date: 20181001
  Transmission Date: 20190204
  Serious: Yes (Other)
  Sender: FDA-Public Use
  Company Number: GR-PFIZER INC-2018392094

PATIENT
  Sex: Male

DRUGS (2)
  1. GEMTUZUMAB OZOGAMICIN [Suspect]
     Active Substance: GEMTUZUMAB OZOGAMICIN
     Indication: ACUTE MYELOID LEUKAEMIA
     Dosage: 3 MG/M2, (DAYS 1, 4, 7)
  2. GEMTUZUMAB OZOGAMICIN [Suspect]
     Active Substance: GEMTUZUMAB OZOGAMICIN
     Dosage: 2 MG/M2, CYCLIC (EVERY 28 DAYS UP TO 8 CYCLES)

REACTIONS (11)
  - Cheilitis [Unknown]
  - Mucosal ulceration [Unknown]
  - Liver function test abnormal [Unknown]
  - Blepharitis [Unknown]
  - Dry eye [Unknown]
  - Chronic graft versus host disease [Unknown]
  - Ulcerative keratitis [Unknown]
  - Hyperbilirubinaemia [Unknown]
  - Erythema [Unknown]
  - Conjunctivitis [Unknown]
  - Blood bilirubin increased [Unknown]
